FAERS Safety Report 14133050 (Version 2)
Quarter: 2017Q4

REPORT INFORMATION
  Report Type: Report from Study
  Country: US (occurrence: US)
  Receive Date: 20171026
  Receipt Date: 20171106
  Transmission Date: 20180321
  Serious: Yes (Hospitalization)
  Sender: FDA-Public Use
  Company Number: US-ACTELION-A-US2017-161388

PATIENT
  Age: 51 Year
  Sex: Female
  Weight: 113.38 kg

DRUGS (1)
  1. OPSUMIT [Suspect]
     Active Substance: MACITENTAN
     Indication: PULMONARY HYPERTENSION
     Dosage: 10 MG, QD
     Route: 048

REACTIONS (7)
  - Decreased appetite [Recovering/Resolving]
  - Rash [Unknown]
  - Pyrexia [Recovering/Resolving]
  - Arthralgia [Unknown]
  - Abdominal pain upper [Recovering/Resolving]
  - Pancreatic cyst [Unknown]
  - Vomiting [Recovering/Resolving]
